FAERS Safety Report 15888908 (Version 1)
Quarter: 2019Q1

REPORT INFORMATION
  Report Type: Spontaneous
  Country: US (occurrence: US)
  Receive Date: 20190130
  Receipt Date: 20190130
  Transmission Date: 20190417
  Serious: No
  Sender: FDA-Public Use
  Company Number: US-ORPHAN EUROPE-2061918

PATIENT
  Age: 8 Year
  Sex: Male

DRUGS (1)
  1. CYSTADANE [Suspect]
     Active Substance: BETAINE
     Indication: PRODUCT USED FOR UNKNOWN INDICATION
     Route: 048

REACTIONS (3)
  - Vomiting [Unknown]
  - Underdose [Unknown]
  - Gastroenteritis viral [Unknown]

NARRATIVE: CASE EVENT DATE: 2018
